FAERS Safety Report 4277889-2 (Version None)
Quarter: 2004Q1

REPORT INFORMATION
  Report Type: 
  Country: None (occurrence: None)
  Receive Date: 20040122
  Receipt Date: 20040122
  Transmission Date: 20041129
  Serious: Yes (Other)
  Sender: FDA-Public Use
  Company Number: None

PATIENT
  Age: 10 Year
  Sex: Male
  Weight: 33 kg

DRUGS (5)
  1. ALBUTEROL   2.5MG [Suspect]
     Indication: BRONCHOSPASM
     Dosage: 2.5 MG   2-4 HOURS   NASAL
     Route: 045
  2. ZOPINEX [Concomitant]
  3. PULMICORT [Concomitant]
  4. SINGULAIR [Concomitant]
  5. ZYRTEC [Concomitant]

REACTIONS (2)
  - RASH ERYTHEMATOUS [None]
  - RASH MACULO-PAPULAR [None]
